FAERS Safety Report 6812407-3 (Version None)
Quarter: 2010Q2

REPORT INFORMATION
  Report Type: 
  Country: None (occurrence: None)
  Receive Date: 20100628
  Receipt Date: 20100615
  Transmission Date: 20101027
  Serious: Yes (Hospitalization, Other)
  Sender: FDA-Public Use
  Company Number: 7008235

PATIENT
  Age: 49 Year
  Sex: Female
  Weight: 95 kg

DRUGS (1)
  1. REBIF [Suspect]
     Indication: DRUG USE FOR UNKNOWN INDICATION
     Dosage: 44 MCG, 3 IN 1 WK, SUBCUTANEOUS
     Route: 058
     Dates: start: 20020101

REACTIONS (5)
  - DIABETES MELLITUS [None]
  - INJECTION SITE INFECTION [None]
  - INJECTION SITE SCAB [None]
  - INJECTION SITE ULCER [None]
  - STAPHYLOCOCCAL INFECTION [None]
